FAERS Safety Report 15546224 (Version 2)
Quarter: 2019Q1

REPORT INFORMATION
  Report Type: Report from Study
  Country: CO (occurrence: CO)
  Receive Date: 20181024
  Receipt Date: 20190103
  Transmission Date: 20190417
  Serious: Yes (Hospitalization)
  Sender: FDA-Public Use
  Company Number: PHHY2018CO135050

PATIENT
  Sex: Male
  Weight: 72 kg

DRUGS (1)
  1. VOTRIENT [Suspect]
     Active Substance: PAZOPANIB HYDROCHLORIDE
     Indication: METASTATIC RENAL CELL CARCINOMA
     Dosage: 800 MG, QD
     Route: 048
     Dates: start: 201807

REACTIONS (6)
  - Pulmonary pain [Unknown]
  - Metastases to lung [Unknown]
  - Asphyxia [Unknown]
  - Lung neoplasm malignant [Unknown]
  - Pleural effusion [Recovering/Resolving]
  - Peripheral swelling [Unknown]
